FAERS Safety Report 25547528 (Version 2)
Quarter: 2025Q3

REPORT INFORMATION
  Report Type: Spontaneous
  Country: US (occurrence: US)
  Receive Date: 20250714
  Receipt Date: 20250804
  Transmission Date: 20251020
  Serious: No
  Sender: ARDELYX
  Company Number: US-ARDELYX-2025ARDX005141

PATIENT
  Sex: Male

DRUGS (2)
  1. XPHOZAH [Suspect]
     Active Substance: TENAPANOR HYDROCHLORIDE
     Indication: Product used for unknown indication
     Route: 065
  2. SEVELAMER CARBONATE [Concomitant]
     Active Substance: SEVELAMER CARBONATE
     Indication: Product used for unknown indication
     Route: 065

REACTIONS (2)
  - Device leakage [Unknown]
  - Catheter management [Unknown]
